FAERS Safety Report 10204362 (Version 2)
Quarter: 2014Q2

REPORT INFORMATION
  Report Type: Spontaneous
  Country: US (occurrence: US)
  Receive Date: 20140529
  Receipt Date: 20140529
  Transmission Date: 20141212
  Serious: No
  Sender: FDA-Public Use
  Company Number: US-MYLANLABS-2013S1016777

PATIENT
  Age: 38 Year
  Sex: Female
  Weight: 97.52 kg

DRUGS (7)
  1. AMITRIPTYLINE [Suspect]
     Indication: INSOMNIA
     Route: 048
     Dates: start: 201305
  2. AMITRIPTYLINE [Suspect]
     Indication: OFF LABEL USE
     Route: 048
     Dates: start: 201305
  3. VALERIAN ROOT [Suspect]
     Indication: INSOMNIA
     Dosage: 3 DAYS PER WEEK
     Route: 048
     Dates: start: 201303, end: 201307
  4. NORCO [Concomitant]
     Indication: FIBROMYALGIA
     Dosage: 10MG/325MG
     Route: 048
     Dates: start: 201203
  5. MS CONTIN [Concomitant]
     Indication: PAIN
     Route: 048
     Dates: start: 201203
  6. WELLBUTRIN [Concomitant]
     Indication: DEPRESSION
     Route: 048
     Dates: start: 20130707
  7. FLEXERIL [Concomitant]
     Indication: MUSCLE SPASMS
     Route: 048
     Dates: start: 201204

REACTIONS (1)
  - Drug screen false positive [Not Recovered/Not Resolved]
